FAERS Safety Report 22648002 (Version 1)
Quarter: 2023Q2

REPORT INFORMATION
  Report Type: Spontaneous
  Country: JO (occurrence: None)
  Receive Date: 20230628
  Receipt Date: 20230628
  Transmission Date: 20230721
  Serious: Yes (Other)
  Sender: FDA-Public Use
  Company Number: JO-ROCHE-3376711

PATIENT
  Age: 40 Year
  Sex: Male

DRUGS (1)
  1. OCREVUS [Suspect]
     Active Substance: OCRELIZUMAB
     Indication: Multiple sclerosis
     Dosage: 1ST DOSE DIVIDED BY 2 WEEKS AND AFTER 2 DAYS FROM THE 2ND 300 MG.
     Route: 065

REACTIONS (1)
  - Myocardial infarction [Unknown]
